FAERS Safety Report 21064253 (Version 1)
Quarter: 2022Q3

REPORT INFORMATION
  Report Type: Spontaneous
  Country: BR (occurrence: BR)
  Receive Date: 20220711
  Receipt Date: 20220711
  Transmission Date: 20221027
  Serious: Yes (Other)
  Sender: FDA-Public Use
  Company Number: BR-BAXTER-2022BAX014032

PATIENT
  Age: 33 Year
  Sex: Female

DRUGS (2)
  1. IRON [Suspect]
     Active Substance: IRON
     Indication: Mineral supplementation
     Dosage: 2 AMPOULES DILUTED IN 250 ML OF 0.9% SODIUM CHLORIDE ADMINISTERED VIA AN ENDOVENOUS ROUTE
     Route: 042
     Dates: start: 20220430, end: 20220430
  2. SODIUM CHLORIDE [Suspect]
     Active Substance: SODIUM CHLORIDE
     Indication: Medication dilution
     Dosage: 250 ML OF 0.9% SODIUM CHLORIDE ADMINISTERED VIA AN ENDOVENOUS ROUTE
     Route: 042
     Dates: start: 20220430, end: 20220430

REACTIONS (4)
  - Burning sensation [Recovered/Resolved]
  - Oedema peripheral [Recovered/Resolved]
  - Pruritus [Recovered/Resolved]
  - Off label use [Unknown]

NARRATIVE: CASE EVENT DATE: 20220430
